FAERS Safety Report 6851158-6 (Version None)
Quarter: 2010Q3

REPORT INFORMATION
  Report Type: 
  Country: None (occurrence: None)
  Receive Date: 20100716
  Receipt Date: 20071222
  Transmission Date: 20110219
  Serious: No
  Sender: FDA-Public Use
  Company Number: US-PFIZER INC-2007090887

PATIENT
  Sex: Female
  Weight: 113.6 kg

DRUGS (12)
  1. CHANTIX [Suspect]
     Indication: SMOKING CESSATION THERAPY
     Dates: start: 20071023
  2. ZAROXOLYN [Concomitant]
  3. K-DUR [Concomitant]
  4. CELEBREX [Concomitant]
  5. METFORMIN HCL [Concomitant]
  6. MULTI-VITAMINS [Concomitant]
  7. PROZAC [Concomitant]
  8. AMBIEN [Concomitant]
  9. XANAX [Concomitant]
  10. SUDAFED 12 HOUR [Concomitant]
  11. CLARITIN [Concomitant]
  12. ALL OTHER THERAPEUTIC PRODUCTS [Concomitant]

REACTIONS (2)
  - ERYTHEMA [None]
  - FEELING HOT [None]
